FAERS Safety Report 9819775 (Version 2)
Quarter: 2014Q1

REPORT INFORMATION
  Report Type: Report from Study
  Country: US (occurrence: US)
  Receive Date: 20140116
  Receipt Date: 20140205
  Transmission Date: 20141002
  Serious: Yes (Other)
  Sender: FDA-Public Use
  Company Number: US-ROCHE-1332319

PATIENT
  Sex: Male

DRUGS (1)
  1. LUCENTIS [Suspect]
     Indication: PRODUCT USED FOR UNKNOWN INDICATION
     Dosage: RIGHT EYE
     Route: 050

REACTIONS (12)
  - Perirectal abscess [Unknown]
  - Urinary fistula [Unknown]
  - Localised infection [Unknown]
  - Renal disorder [Unknown]
  - Dysuria [Unknown]
  - Urinary tract disorder [Unknown]
  - Muscular weakness [Unknown]
  - Diabetes mellitus [Unknown]
  - Nervous system disorder [Unknown]
  - Visual acuity reduced [Unknown]
  - Renal failure chronic [Unknown]
  - Blister [Recovered/Resolved]
